FAERS Safety Report 4283986-8 (Version None)
Quarter: 2004Q1

REPORT INFORMATION
  Report Type: 
  Country: None (occurrence: None)
  Receive Date: 20040202
  Receipt Date: 20040202
  Transmission Date: 20041129
  Serious: No
  Sender: FDA-Public Use
  Company Number: None

PATIENT
  Age: 32 Year
  Sex: Female
  Weight: 61.2356 kg

DRUGS (1)
  1. LEUPROLIDE ACETATE 1 MG/0.2 ML IVAX [Suspect]
     Indication: INFERTILITY
     Dosage: 1 CC ONCE A DAY SQ
     Route: 058
     Dates: start: 20030801, end: 20030901

REACTIONS (1)
  - ARTHRALGIA [None]
